FAERS Safety Report 14979185 (Version 2)
Quarter: 2018Q3

REPORT INFORMATION
  Report Type: Report from Study
  Country: US (occurrence: US)
  Receive Date: 20180606
  Receipt Date: 20180813
  Transmission Date: 20181010
  Serious: Yes (Other)
  Sender: FDA-Public Use
  Company Number: US-AMGEN-USASL2018074637

PATIENT
  Sex: Female

DRUGS (1)
  1. REPATHA [Suspect]
     Active Substance: EVOLOCUMAB
     Indication: ARTERIOSCLEROSIS CORONARY ARTERY
     Dosage: 140 MG, Q2WK
     Route: 065

REACTIONS (8)
  - Memory impairment [Recovering/Resolving]
  - Anxiety [Recovering/Resolving]
  - Paraesthesia [Unknown]
  - Dizziness [Unknown]
  - Affect lability [Unknown]
  - Feeling abnormal [Recovering/Resolving]
  - Loss of personal independence in daily activities [Unknown]
  - Low density lipoprotein decreased [Recovering/Resolving]
